FAERS Safety Report 11390370 (Version 1)
Quarter: 2015Q3

REPORT INFORMATION
  Report Type: Spontaneous
  Country: US (occurrence: US)
  Receive Date: 20150818
  Receipt Date: 20150818
  Transmission Date: 20151125
  Serious: No
  Sender: FDA-Public Use
  Company Number: US-ROCHE-1418327

PATIENT
  Age: 48 Year
  Sex: Male

DRUGS (1)
  1. PEGASYS [Suspect]
     Active Substance: PEGINTERFERON ALFA-2A
     Indication: CHRONIC HEPATITIS C
     Dosage: ABOUT 3 WEEKS AGO
     Route: 058
     Dates: start: 201405

REACTIONS (3)
  - Injection site pain [Unknown]
  - Product quality issue [Unknown]
  - Exposure via direct contact [Unknown]

NARRATIVE: CASE EVENT DATE: 20140607
